FAERS Safety Report 4650020-7 (Version None)
Quarter: 2005Q2

REPORT INFORMATION
  Report Type: 
  Country: None (occurrence: None)
  Receive Date: 20050502
  Receipt Date: 19980302
  Transmission Date: 20051028
  Serious: Yes (Hospitalization)
  Sender: FDA-Public Use
  Company Number: JP-NOVOPROD-108629

PATIENT
  Age: 45 Year
  Sex: Male

DRUGS (5)
  1. NOVOLOG MIX 70/30 [Suspect]
     Indication: INSULIN-REQUIRING TYPE II DIABETES MELLITUS
     Dates: start: 19971208, end: 19980216
  2. GLIBENCLAMIDE [Concomitant]
     Indication: ILL-DEFINED DISORDER
  3. ACARBOSE [Concomitant]
     Indication: ILL-DEFINED DISORDER
  4. PRAVASTATIN SODIUM [Concomitant]
     Indication: ILL-DEFINED DISORDER
  5. EPALRESTAT [Concomitant]
     Indication: ILL-DEFINED DISORDER

REACTIONS (9)
  - ALANINE AMINOTRANSFERASE INCREASED [None]
  - ASPARTATE AMINOTRANSFERASE INCREASED [None]
  - BLOOD ALKALINE PHOSPHATASE INCREASED [None]
  - BLOOD BILIRUBIN INCREASED [None]
  - BLOOD LACTATE DEHYDROGENASE INCREASED [None]
  - HEPATIC FUNCTION ABNORMAL [None]
  - LIVER FUNCTION TEST ABNORMAL [None]
  - POLYDIPSIA [None]
  - THIRST [None]
